FAERS Safety Report 8256668-5 (Version None)
Quarter: 2012Q2

REPORT INFORMATION
  Report Type: 
  Country: None (occurrence: None)
  Receive Date: 20120403
  Receipt Date: 20120322
  Transmission Date: 20120825
  Serious: Yes (Hospitalization)
  Sender: FDA-Public Use
  Company Number: CG-MERCK-1203USA03428

PATIENT
  Age: 55 Year
  Sex: Male
  Weight: 56 kg

DRUGS (1)
  1. STROMECTOL [Suspect]
     Indication: ONCHOCERCIASIS
     Route: 048
     Dates: start: 20111217, end: 20111217

REACTIONS (15)
  - ASTHENIA [None]
  - MUTISM [None]
  - CONJUNCTIVAL HAEMORRHAGE [None]
  - URINARY INCONTINENCE [None]
  - VERTIGO [None]
  - COMA [None]
  - NODULE [None]
  - PYREXIA [None]
  - PARAESTHESIA [None]
  - SKIN HYPOPIGMENTATION [None]
  - DIARRHOEA [None]
  - HEADACHE [None]
  - SKIN DISORDER [None]
  - ENCEPHALOPATHY [None]
  - MALARIA [None]
